FAERS Safety Report 5271205-5 (Version None)
Quarter: 2007Q1

REPORT INFORMATION
  Report Type: 
  Country: None (occurrence: None)
  Receive Date: 20061214
  Receipt Date: 20060804
  Transmission Date: 20070707
  Serious: Yes (Hospitalization, Other)
  Sender: FDA-Public Use
  Company Number: 2005083128

PATIENT
  Age: 71 Year
  Sex: Female
  Weight: 81.6475 kg

DRUGS (11)
  1. BEXTRA [Suspect]
     Indication: ARTHRITIS
     Dosage: 10 MG (10 MG,1 IN 1 D),ORAL
     Route: 048
     Dates: start: 20040101, end: 20041001
  2. BEXTRA [Suspect]
     Indication: OSTEOARTHRITIS
     Dosage: 10 MG (10 MG,1 IN 1 D),ORAL
     Route: 048
     Dates: start: 20040101, end: 20041001
  3. TRAMADOL HCL [Concomitant]
  4. TYLENOL W/ CODEINE [Concomitant]
  5. MECLIZINE [Concomitant]
  6. CLONAZEPAM [Concomitant]
  7. PREVACID [Concomitant]
  8. SYNTHROID [Concomitant]
  9. ZOLOFT [Concomitant]
  10. PREDNISONE TAB [Concomitant]
  11. LIPITOR [Concomitant]

REACTIONS (1)
  - MYOCARDIAL INFARCTION [None]
